FAERS Safety Report 19821551 (Version 1)
Quarter: 2021Q3

REPORT INFORMATION
  Report Type: Spontaneous
  Country: US (occurrence: US)
  Receive Date: 20210909
  Receipt Date: 20210909
  Transmission Date: 20211014
  Serious: Yes (Death)
  Sender: FDA-Public Use
  Company Number: None

PATIENT
  Age: 61 Year
  Sex: Female

DRUGS (1)
  1. BOTOX [Suspect]
     Active Substance: ONABOTULINUMTOXINA
     Dosage: ?          OTHER STRENGTH:100 UNIT;OTHER DOSE:400 UNITS;?
     Route: 030
     Dates: start: 201710, end: 202107

REACTIONS (1)
  - Death [None]

NARRATIVE: CASE EVENT DATE: 20210725
